FAERS Safety Report 10101991 (Version 2)
Quarter: 2014Q2

REPORT INFORMATION
  Report Type: Report from Study
  Country: ZW (occurrence: ZW)
  Receive Date: 20140424
  Receipt Date: 20140424
  Transmission Date: 20141212
  Serious: Yes (Life-Threatening, Hospitalization)
  Sender: FDA-Public Use
  Company Number: ZW-BRISTOL-MYERS SQUIBB COMPANY-16261059

PATIENT
  Age: 38 Year
  Sex: Female
  Weight: 65.6 kg

DRUGS (4)
  1. EFAVIRENZ TABS [Suspect]
     Indication: HIV INFECTION
     Dosage: INTERRUPT 13-JUL-09 TO 21-JUL-09?THERAPY FROM 21-JUL-09 TO 05-MAY-11 INT?CONTINUE FROM 16-MAY-11
     Route: 048
     Dates: start: 20071119
  2. STAVUDINE [Suspect]
     Indication: HIV INFECTION
     Dosage: INTERRUPT 13-JUL-09 TO 21-JUL-09?THERAPY FROM 21-JUL-09 TO 05-MAY-11 INT?CONTINUE FROM 16-MAY-11
     Route: 048
     Dates: start: 20090218
  3. LAMIVUDINE [Suspect]
     Indication: HIV INFECTION
     Dosage: INTERRUPT 13-JUL-09 TO 21-JUL-09?THERAPY FROM 21-JUL-09 TO 05-MAY-11 INT?CONTINUE FROM 16-MAY-11
     Route: 048
     Dates: start: 20090218
  4. ETHINYLESTRADIOL + NORGESTREL [Concomitant]
     Indication: CONTRACEPTION

REACTIONS (2)
  - Anaemia [Not Recovered/Not Resolved]
  - Vaginal haemorrhage [Unknown]
